FAERS Safety Report 4969283-3 (Version None)
Quarter: 2006Q2

REPORT INFORMATION
  Report Type: 
  Country: None (occurrence: None)
  Receive Date: 20060411
  Receipt Date: 20060331
  Transmission Date: 20061013
  Serious: Yes (Hospitalization)
  Sender: FDA-Public Use
  Company Number: DE-ROCHE-443091

PATIENT
  Age: 41 Year
  Sex: Female

DRUGS (2)
  1. TAMIFLU [Suspect]
     Route: 048
     Dates: end: 20060112
  2. NOVALGIN [Concomitant]

REACTIONS (11)
  - BLOOD PRESSURE INCREASED [None]
  - CARDIAC DISORDER [None]
  - CARDIOMEGALY [None]
  - GLOMERULONEPHRITIS ACUTE [None]
  - NEPHRITIS [None]
  - PLEURAL EFFUSION [None]
  - RENAL FAILURE ACUTE [None]
  - SPLENOMEGALY [None]
  - URTICARIA [None]
  - UTERINE LEIOMYOMA [None]
  - VASODILATATION [None]
